FAERS Safety Report 16086601 (Version 5)
Quarter: 2019Q2

REPORT INFORMATION
  Report Type: Report from Study
  Country: US (occurrence: US)
  Receive Date: 20190318
  Receipt Date: 20190619
  Transmission Date: 20190711
  Serious: Yes (Other)
  Sender: FDA-Public Use
  Company Number: US-TAKEDA-2019TUS006705

PATIENT

DRUGS (2)
  1. BRIGATINIB [Suspect]
     Active Substance: BRIGATINIB
     Indication: NON-SMALL CELL LUNG CANCER METASTATIC
  2. BRIGATINIB [Suspect]
     Active Substance: BRIGATINIB
     Indication: ANAPLASTIC LYMPHOMA KINASE GENE MUTATION
     Dosage: UNK
     Route: 065

REACTIONS (25)
  - Disease progression [Recovered/Resolved]
  - Paraesthesia [Not Recovered/Not Resolved]
  - Rash generalised [Unknown]
  - Oropharyngeal pain [Recovered/Resolved]
  - Discomfort [Unknown]
  - Memory impairment [Recovering/Resolving]
  - Depression [Unknown]
  - Constipation [Unknown]
  - Alopecia [Unknown]
  - Gait disturbance [Unknown]
  - Sleep disorder [Not Recovered/Not Resolved]
  - Pain [Unknown]
  - Pain in extremity [Unknown]
  - Emotional distress [Unknown]
  - Dysphagia [Unknown]
  - Hypoaesthesia [Not Recovered/Not Resolved]
  - Fatigue [Recovering/Resolving]
  - Cough [Recovering/Resolving]
  - Somnolence [Recovered/Resolved]
  - Depressed mood [Recovered/Resolved]
  - Musculoskeletal pain [Unknown]
  - Chest pain [Unknown]
  - Decreased appetite [Unknown]
  - Dry mouth [Recovering/Resolving]
  - Dyspnoea [Recovering/Resolving]

NARRATIVE: CASE EVENT DATE: 20190401
